FAERS Safety Report 20348499 (Version 3)
Quarter: 2022Q1

REPORT INFORMATION
  Report Type: Report from Study
  Country: BG (occurrence: BG)
  Receive Date: 20220119
  Receipt Date: 20220309
  Transmission Date: 20220424
  Serious: Yes (Other)
  Sender: FDA-Public Use
  Company Number: BG-CELLTRION INC.-2022BG000297

PATIENT

DRUGS (13)
  1. TRASTUZUMAB [Suspect]
     Active Substance: TRASTUZUMAB
     Indication: HER2 positive breast cancer
     Dosage: 450 MG, EVERY 3 WEEKS (MOST RECENT DOSE PRIOR TO THE EVENT: 02/JUN/2020)
     Route: 041
     Dates: start: 20180817, end: 20190423
  2. TRASTUZUMAB [Suspect]
     Active Substance: TRASTUZUMAB
     Dosage: 300 MG, EVERY 3 WEEKS
     Route: 041
     Dates: start: 20190602
  3. TRASTUZUMAB [Suspect]
     Active Substance: TRASTUZUMAB
     Dosage: 300 MG, EVERY 3 WEEKS
     Route: 041
     Dates: start: 20190605, end: 20191210
  4. DOCETAXEL [Suspect]
     Active Substance: DOCETAXEL
     Indication: HER2 positive breast cancer
     Dosage: 75 MG/M2, EVERY 3 WEEKS
     Route: 042
     Dates: start: 20180720, end: 20190104
  5. DOCETAXEL [Suspect]
     Active Substance: DOCETAXEL
     Dosage: 75 MG/M2, EVERY 4 WEEKS
     Route: 042
     Dates: start: 20190104, end: 20190423
  6. VINORELBINE [Suspect]
     Active Substance: VINORELBINE TARTRATE
     Indication: HER2 positive breast cancer
     Dosage: 40 MG; OTHER
     Route: 042
     Dates: start: 20190605, end: 20191217
  7. PACLITAXEL [Suspect]
     Active Substance: PACLITAXEL
     Indication: HER2 positive breast cancer
     Dosage: 278 ML, EVERY 4 WEEKS
     Route: 042
     Dates: start: 20210205, end: 20210927
  8. ADO-TRASTUZUMAB EMTANSINE [Suspect]
     Active Substance: ADO-TRASTUZUMAB EMTANSINE
     Indication: HER2 positive breast cancer
     Dosage: 160 MG, EVERY 3 WEEKS
     Route: 042
     Dates: start: 20200206, end: 20200504
  9. CAPECITABINE [Suspect]
     Active Substance: CAPECITABINE
     Indication: HER2 positive breast cancer
     Dosage: 3500 MG; OTHER
     Route: 048
     Dates: start: 20200602, end: 20210123
  10. KETOTIFEN [Concomitant]
     Active Substance: KETOTIFEN
     Indication: Cough
     Dosage: 1 MG, EVERY 1 DAY (ONGOING = CHECKED)
     Route: 048
     Dates: start: 20200521
  11. ALBUTEROL [Concomitant]
     Active Substance: ALBUTEROL
     Indication: Cough
     Dosage: 2 MG, EVERY 1 DAY (ONGOING = CHECKED)
     Route: 048
     Dates: start: 20200521
  12. ZOMETA [Concomitant]
     Active Substance: ZOLEDRONIC ACID
     Dosage: 4 MG, EVERY 4 WEEKS (LAST DOSE ADMINISTERED: 21/DEC/2020 PLANNED NUMBER OF CYCLES COMPLETED)
     Route: 042
     Dates: start: 20200227
  13. ZOFRAN [Concomitant]
     Active Substance: ONDANSETRON HYDROCHLORIDE
     Indication: Vomiting
     Dosage: 8 MG, EVERY 1 DAY
     Route: 048
     Dates: start: 20181113, end: 20181117

REACTIONS (2)
  - COVID-19 [Recovered/Resolved]
  - Off label use [Unknown]

NARRATIVE: CASE EVENT DATE: 20211007
